FAERS Safety Report 12676350 (Version 1)
Quarter: 2016Q3

REPORT INFORMATION
  Report Type: Spontaneous
  Country: IT (occurrence: IT)
  Receive Date: 20160823
  Receipt Date: 20160823
  Transmission Date: 20161109
  Serious: Yes (Hospitalization)
  Sender: FDA-Public Use
  Company Number: IT-009507513-1608ITA011041

PATIENT
  Age: 73 Year
  Sex: Male

DRUGS (1)
  1. NANDROLONE DECANOATE. [Suspect]
     Active Substance: NANDROLONE DECANOATE
     Indication: SARCOPENIA
     Dosage: UNK
     Route: 030
     Dates: start: 20160615, end: 20160615

REACTIONS (3)
  - Off label use [Recovered/Resolved]
  - Dermatitis exfoliative [Recovered/Resolved]
  - Vasculitis [Recovered/Resolved]

NARRATIVE: CASE EVENT DATE: 20160615
